FAERS Safety Report 18935996 (Version 2)
Quarter: 2021Q4

REPORT INFORMATION
  Report Type: Other
  Country: JP (occurrence: JP)
  Receive Date: 20210225
  Receipt Date: 20211214
  Transmission Date: 20220303
  Serious: Yes (Other)
  Sender: FDA-Public Use
  Company Number: JP-CHUGAI-A2021007093ROCHE

PATIENT
  Age: 53 Year
  Sex: Female
  Weight: 59.7 kg

DRUGS (2)
  1. ENTRECTINIB [Suspect]
     Active Substance: ENTRECTINIB
     Indication: Non-small cell lung cancer
     Route: 048
     Dates: start: 20210128, end: 20210216
  2. ENTRECTINIB [Suspect]
     Active Substance: ENTRECTINIB
     Dosage: MOST RECENT DOSE ON 29/MAR/2021
     Route: 048
     Dates: start: 20210217

REACTIONS (5)
  - Renal impairment [Unknown]
  - Arrhythmia [Unknown]
  - Oedema [Unknown]
  - Palpitations [Recovering/Resolving]
  - Oedema peripheral [Recovering/Resolving]

NARRATIVE: CASE EVENT DATE: 20210216
